FAERS Safety Report 8972969 (Version 1)
Quarter: 2012Q4

REPORT INFORMATION
  Report Type: 
  Country: IL (occurrence: US)
  Receive Date: 20121218
  Receipt Date: 20121218
  Transmission Date: 20130627
  Serious: No
  Sender: FDA-Public Use
  Company Number: US-BRISTOL-MYERS SQUIBB COMPANY-16458994

PATIENT
  Age: 10 Year
  Sex: Male

DRUGS (2)
  1. ABILIFY [Suspect]
     Indication: TOURETTE^S DISORDER
     Dosage: Dose reduced to 5mg, than stopped.
     Dates: start: 20120101, end: 20120307
  2. ABILIFY [Suspect]
     Indication: PSYCHOTIC DISORDER
     Dosage: Dose reduced to 5mg, than stopped.
     Dates: start: 20120101, end: 20120307

REACTIONS (1)
  - Vomiting [Recovered/Resolved]
